FAERS Safety Report 10640781 (Version 2)
Quarter: 2014Q4

REPORT INFORMATION
  Report Type: Spontaneous
  Country: ZA (occurrence: ZA)
  Receive Date: 20141209
  Receipt Date: 20141209
  Transmission Date: 20150529
  Serious: Yes (Hospitalization, Other)
  Sender: FDA-Public Use
  Company Number: ZA-009507513-1411ZAF013541

PATIENT
  Age: 72 Year
  Sex: Female

DRUGS (5)
  1. DIPRIVAN [Concomitant]
     Active Substance: PROPOFOL
     Dosage: UNK
     Dates: start: 20141111
  2. TRAMAL [Concomitant]
     Active Substance: TRAMADOL
     Dosage: 1 DF, UNK, FORMULATION : 1 AMPOULE
     Dates: start: 20141111
  3. SUBLIMAZE [Concomitant]
     Active Substance: FENTANYL CITRATE
     Dosage: 1 DF, UNK, FORMULATION: AMPOULE
     Dates: start: 20141111
  4. ESMERON [Suspect]
     Active Substance: ROCURONIUM BROMIDE
     Dosage: UNK
     Dates: start: 20141111
  5. PERFALGAN [Concomitant]
     Active Substance: ACETAMINOPHEN
     Dosage: UNK, 300 MG - 500 MG
     Route: 042
     Dates: start: 20141111

REACTIONS (4)
  - Cholecystectomy [Unknown]
  - Blood pressure decreased [Unknown]
  - Bronchospasm [Unknown]
  - Cardiac disorder [Unknown]

NARRATIVE: CASE EVENT DATE: 20141111
